FAERS Safety Report 9342055 (Version 1)
Quarter: 2013Q2

REPORT INFORMATION
  Report Type: Spontaneous
  Country: GB (occurrence: None)
  Receive Date: 20130606
  Receipt Date: 20130606
  Transmission Date: 20140414
  Serious: Yes (Other)
  Sender: FDA-Public Use
  Company Number: 1419181-2013-00002

PATIENT
  Age: 32 Year
  Sex: Female
  Weight: 65 kg

DRUGS (1)
  1. CHLORHEXIDINE [Suspect]
     Route: 061
     Dates: end: 2012

REACTIONS (2)
  - Syncope [None]
  - Fall [None]
